FAERS Safety Report 7125805-8 (Version None)
Quarter: 2010Q4

REPORT INFORMATION
  Report Type: 
  Country: None (occurrence: None)
  Receive Date: 20101129
  Receipt Date: 20101123
  Transmission Date: 20110411
  Serious: Yes (Hospitalization)
  Sender: FDA-Public Use
  Company Number: B0686304A

PATIENT
  Sex: Female

DRUGS (1)
  1. AUGMENTIN [Suspect]
     Dosage: 1TAB PER DAY
     Route: 048
     Dates: start: 20101115, end: 20101115

REACTIONS (4)
  - OEDEMA MUCOSAL [None]
  - PAINFUL RESPIRATION [None]
  - PRURITUS [None]
  - SWELLING FACE [None]
